FAERS Safety Report 10372625 (Version 1)
Quarter: 2014Q3

REPORT INFORMATION
  Report Type: Spontaneous
  Country: US (occurrence: US)
  Receive Date: 20140808
  Receipt Date: 20140808
  Transmission Date: 20150326
  Serious: No
  Sender: FDA-Public Use
  Company Number: US-BAXTER-2014BAX041778

PATIENT
  Age: 27 Year
  Sex: Male

DRUGS (2)
  1. TISSEEL VH [Suspect]
     Active Substance: FIBRINOGEN HUMAN\THROMBIN HUMAN
     Indication: OCCUPATIONAL EXPOSURE TO PRODUCT
  2. TISSEEL VH [Suspect]
     Active Substance: FIBRINOGEN HUMAN\THROMBIN HUMAN
     Indication: SKIN GRAFT
     Route: 061
     Dates: start: 20140721, end: 20140721

REACTIONS (3)
  - Occupational exposure to product [Recovered/Resolved]
  - Needle issue [Unknown]
  - No adverse event [Recovered/Resolved]

NARRATIVE: CASE EVENT DATE: 20140721
